FAERS Safety Report 6885146-0 (Version None)
Quarter: 2010Q3

REPORT INFORMATION
  Report Type: 
  Country: None (occurrence: None)
  Receive Date: 20100729
  Receipt Date: 20071221
  Transmission Date: 20110219
  Serious: Yes (Other)
  Sender: FDA-Public Use
  Company Number: US-PFIZER INC-2007107353

PATIENT
  Sex: Male
  Weight: 83.9 kg

DRUGS (2)
  1. CELEBREX [Suspect]
     Indication: KNEE OPERATION
     Dates: start: 20031001
  2. ALEVE (CAPLET) [Concomitant]

REACTIONS (1)
  - GASTRIC HAEMORRHAGE [None]
